FAERS Safety Report 4888250-1 (Version None)
Quarter: 2006Q1

REPORT INFORMATION
  Report Type: 
  Country: None (occurrence: None)
  Receive Date: 20060119
  Receipt Date: 20060101
  Transmission Date: 20060701
  Serious: Yes (Death)
  Sender: FDA-Public Use
  Company Number: 200610255BWH

PATIENT

DRUGS (1)
  1. SORAFENIB [Suspect]
     Indication: SQUAMOUS CELL CARCINOMA
     Dosage: 400 MG, BID; ORAL
     Route: 048
     Dates: start: 20050228, end: 20050712

REACTIONS (1)
  - MALIGNANT NEOPLASM PROGRESSION [None]
